FAERS Safety Report 5959443-7 (Version None)
Quarter: 2008Q4

REPORT INFORMATION
  Report Type: 
  Country: None (occurrence: None)
  Receive Date: 20081120
  Receipt Date: 20081020
  Transmission Date: 20090506
  Serious: No
  Sender: FDA-Public Use
  Company Number: A0752523A

PATIENT
  Age: 64 Year
  Sex: Female

DRUGS (3)
  1. VERAMYST [Suspect]
     Dosage: 27.5MCG AS REQUIRED
     Route: 045
     Dates: start: 20070101
  2. LIPITOR [Concomitant]
  3. VITAMINS [Concomitant]

REACTIONS (2)
  - BURNING SENSATION [None]
  - EPISTAXIS [None]
